FAERS Safety Report 25099262 (Version 2)
Quarter: 2025Q2

REPORT INFORMATION
  Report Type: Report from Study
  Country: AU (occurrence: AU)
  Receive Date: 20250320
  Receipt Date: 20250428
  Transmission Date: 20250717
  Serious: Yes (Other)
  Sender: NOVARTIS
  Company Number: AU-002147023-NVSC2025AU044187

PATIENT
  Sex: Female

DRUGS (4)
  1. TAFINLAR [Suspect]
     Active Substance: DABRAFENIB MESYLATE
     Indication: Neoplasm malignant
     Route: 065
     Dates: start: 202410
  2. TAFINLAR [Suspect]
     Active Substance: DABRAFENIB MESYLATE
     Route: 065
     Dates: start: 20250314
  3. MEKINIST [Suspect]
     Active Substance: TRAMETINIB DIMETHYL SULFOXIDE
     Indication: Neoplasm malignant
     Route: 065
     Dates: start: 202410
  4. MEKINIST [Suspect]
     Active Substance: TRAMETINIB DIMETHYL SULFOXIDE
     Route: 065
     Dates: start: 20250314

REACTIONS (9)
  - Syncope [Unknown]
  - Pyrexia [Unknown]
  - Chills [Unknown]
  - Dizziness [Unknown]
  - Muscle spasms [Unknown]
  - Muscular weakness [Unknown]
  - Pain in extremity [Unknown]
  - Paraesthesia [Unknown]
  - Off label use [Unknown]
